FAERS Safety Report 10879204 (Version 1)
Quarter: 2015Q1

REPORT INFORMATION
  Report Type: Spontaneous
  Country: US (occurrence: US)
  Receive Date: 20150302
  Receipt Date: 20150302
  Transmission Date: 20150721
  Serious: No
  Sender: FDA-Public Use
  Company Number: US-GLAXOSMITHKLINE-US2015010069

PATIENT
  Sex: Female

DRUGS (11)
  1. PROAIR HFA [Concomitant]
     Active Substance: ALBUTEROL SULFATE
  2. HYDROCHLOROTHIAZIDE. [Concomitant]
     Active Substance: HYDROCHLOROTHIAZIDE
  3. LOSARTAN [Concomitant]
     Active Substance: LOSARTAN
  4. XANAX [Concomitant]
     Active Substance: ALPRAZOLAM
  5. METFORMIN [Concomitant]
     Active Substance: METFORMIN HYDROCHLORIDE
  6. AMARYL [Concomitant]
     Active Substance: GLIMEPIRIDE
  7. LOPRESSOR [Concomitant]
     Active Substance: METOPROLOL TARTRATE
  8. ADVAIR DISKUS [Suspect]
     Active Substance: FLUTICASONE PROPIONATE\SALMETEROL XINAFOATE
     Dosage: 1 PUFF(S), BID
     Route: 055
     Dates: start: 2013
  9. CYMBALTA [Concomitant]
     Active Substance: DULOXETINE HYDROCHLORIDE
  10. CRESTOR [Concomitant]
     Active Substance: ROSUVASTATIN CALCIUM
  11. LASIX [Concomitant]
     Active Substance: FUROSEMIDE

REACTIONS (2)
  - Drug ineffective [Unknown]
  - Product quality issue [Unknown]
